FAERS Safety Report 9797958 (Version 2)
Quarter: 2014Q1

REPORT INFORMATION
  Report Type: Report from Study
  Country: BR (occurrence: BR)
  Receive Date: 20140106
  Receipt Date: 20140108
  Transmission Date: 20141002
  Serious: Yes (Hospitalization, Other)
  Sender: FDA-Public Use
  Company Number: PHHY2014BR000593

PATIENT
  Age: 84 Year
  Sex: Male
  Weight: 94 kg

DRUGS (10)
  1. FORASEQ [Suspect]
     Indication: LUNG DISORDER
     Dosage: 1 DF, DAILY
     Route: 055
  2. FORASEQ [Suspect]
     Indication: SECRETION DISCHARGE
  3. MICARDIS [Suspect]
     Indication: BLOOD PRESSURE ABNORMAL
     Dosage: 1 TABLET, DAILY
     Route: 048
  4. LASIX [Suspect]
     Indication: DIURETIC THERAPY
     Dosage: 1/2 TABLET DAILY
     Route: 048
  5. LASIX [Suspect]
     Indication: HYPERTENSION
  6. FLUIR [Concomitant]
     Indication: PRODUCTIVE COUGH
     Dosage: 460 MG, UNK
  7. FLUIR [Concomitant]
     Dosage: 200 MG, UNK
  8. FLUIMUCIL [Concomitant]
     Indication: SECRETION DISCHARGE
     Dosage: 1 SACHET SPORADICALLY
     Route: 048
  9. LIPITOR [Concomitant]
     Indication: BLOOD CHOLESTEROL ABNORMAL
     Dosage: 1 TABLET DAILY
     Route: 048
  10. MICARDIS HCT [Concomitant]
     Indication: HYPERTENSION
     Dosage: UNK UKN, DAILY
     Route: 048

REACTIONS (8)
  - Blood pressure decreased [Recovering/Resolving]
  - Syncope [Recovered/Resolved]
  - Urinary tract infection [Recovered/Resolved]
  - Haemorrhage urinary tract [Recovered/Resolved]
  - Arthropathy [Not Recovered/Not Resolved]
  - Mobility decreased [Not Recovered/Not Resolved]
  - Expired drug administered [Unknown]
  - Drug ineffective [Not Recovered/Not Resolved]
